FAERS Safety Report 9298719 (Version 1)
Quarter: 2013Q2

REPORT INFORMATION
  Report Type: Spontaneous
  Country: US (occurrence: US)
  Receive Date: 20130520
  Receipt Date: 20130520
  Transmission Date: 20140414
  Serious: Yes (Hospitalization)
  Sender: FDA-Public Use
  Company Number: US-GLAXOSMITHKLINE-A0790494A

PATIENT
  Age: 69 Year
  Sex: Male
  Weight: 88.6 kg

DRUGS (1)
  1. AVANDIA [Suspect]
     Indication: TYPE 2 DIABETES MELLITUS
     Dosage: 4MG PER DAY
     Route: 048
     Dates: start: 2002, end: 20070513

REACTIONS (10)
  - Myocardial infarction [Unknown]
  - Pneumonia [Unknown]
  - Cerebrovascular accident [Unknown]
  - Aortic aneurysm [Unknown]
  - Cardiac disorder [Unknown]
  - Renal disorder [Unknown]
  - Lung disorder [Unknown]
  - Arrhythmia [Unknown]
  - Chronic obstructive pulmonary disease [Unknown]
  - Renal artery stenosis [Unknown]
